FAERS Safety Report 10177545 (Version 2)
Quarter: 2014Q2

REPORT INFORMATION
  Report Type: Report from Study
  Country: JP (occurrence: JP)
  Receive Date: 20140516
  Receipt Date: 20140516
  Transmission Date: 20141212
  Serious: Yes (Hospitalization, Other)
  Sender: FDA-Public Use
  Company Number: JP-BRISTOL-MYERS SQUIBB COMPANY-20601258

PATIENT
  Age: 40 Year
  Sex: Female
  Weight: 44 kg

DRUGS (7)
  1. SPRYCEL [Suspect]
     Indication: ACUTE LYMPHOCYTIC LEUKAEMIA
     Dosage: 70MG 04-JUL-11 TO 07-JUL-11.2/DAY?50MG 08-JUL-11 TO 13-MAR-2014.2/DAY?20MG 09-APR-14 TO ONG.1/DAY
     Route: 048
     Dates: start: 20110704
  2. CLARITH [Suspect]
     Route: 048
  3. L-CARBOCISTEINE [Suspect]
  4. LOXOPROFEN SODIUM [Concomitant]
     Indication: BACK PAIN
     Route: 048
     Dates: end: 20140313
  5. SELBEX [Concomitant]
     Indication: GASTRITIS
     Route: 048
     Dates: end: 20140313
  6. ADONA [Concomitant]
     Indication: HAEMORRHOIDAL HAEMORRHAGE
     Route: 048
     Dates: start: 20130426
  7. FERROMIA [Concomitant]
     Indication: IRON DEFICIENCY ANAEMIA
     Route: 048
     Dates: start: 20121226

REACTIONS (5)
  - Pulmonary arterial hypertension [Recovered/Resolved]
  - Pleural effusion [Recovered/Resolved]
  - Right ventricular failure [Recovered/Resolved]
  - Pericardial effusion [Unknown]
  - Liver disorder [Unknown]
